FAERS Safety Report 12443258 (Version 2)
Quarter: 2016Q2

REPORT INFORMATION
  Report Type: Spontaneous
  Country: CO (occurrence: CO)
  Receive Date: 20160607
  Receipt Date: 20160613
  Transmission Date: 20160815
  Serious: Yes (Other)
  Sender: FDA-Public Use
  Company Number: CO-BIOGEN-2016BI00223759

PATIENT
  Sex: Female
  Weight: 55 kg

DRUGS (14)
  1. OMEPRAZOL [Concomitant]
     Active Substance: OMEPRAZOLE
     Route: 048
     Dates: start: 201305, end: 201602
  2. AVONEX [Suspect]
     Active Substance: INTERFERON BETA-1A
     Route: 030
     Dates: start: 20130808, end: 20160307
  3. ACETAMINOPHEN. [Concomitant]
     Active Substance: ACETAMINOPHEN
     Dosage: MINUTES BEFORE INTERFERON BETA 1A?ADMINISTRATION, AND THEN 500 MG EVERY 8 HOURS
     Route: 048
     Dates: start: 20160512
  4. AMANTADINE [Concomitant]
     Active Substance: AMANTADINE
     Route: 048
     Dates: start: 201308, end: 201603
  5. OMEPRAZOL [Concomitant]
     Active Substance: OMEPRAZOLE
     Indication: PROPHYLAXIS
     Route: 048
     Dates: start: 200802, end: 201305
  6. ACETAMINOPHEN. [Concomitant]
     Active Substance: ACETAMINOPHEN
     Indication: PREMEDICATION
     Dosage: ON THE DAY OF INTERFERON BETA 1 ADMINISTRATION
     Route: 048
     Dates: end: 201602
  7. AVONEX [Suspect]
     Active Substance: INTERFERON BETA-1A
     Route: 030
     Dates: start: 20160512
  8. ACETAMINOPHEN. [Concomitant]
     Active Substance: ACETAMINOPHEN
     Indication: PAIN
     Dosage: MINUTES BEFORE INTERFERON BETA 1A?ADMINISTRATION, AND THEN 500 MG EVERY 8 HOURS
     Route: 048
     Dates: start: 20080221, end: 201305
  9. AMANTADINE [Concomitant]
     Active Substance: AMANTADINE
     Route: 048
     Dates: end: 201602
  10. AMANTADINE [Concomitant]
     Active Substance: AMANTADINE
     Route: 048
     Dates: start: 201605
  11. FOLIC ACID. [Concomitant]
     Active Substance: FOLIC ACID
     Indication: PRODUCT USED FOR UNKNOWN INDICATION
     Route: 048
     Dates: start: 20080219
  12. ACETAMINOPHEN. [Concomitant]
     Active Substance: ACETAMINOPHEN
     Dosage: MINUTES BEFORE INTERFERON BETA 1A?ADMINISTRATION, AND THEN 500 MG EVERY 8 HOURS
     Route: 048
     Dates: start: 201308, end: 20160307
  13. AMANTADINE [Concomitant]
     Active Substance: AMANTADINE
     Indication: FATIGUE
     Route: 048
     Dates: start: 20080418, end: 201305
  14. AVONEX [Suspect]
     Active Substance: INTERFERON BETA-1A
     Indication: MULTIPLE SCLEROSIS
     Route: 030
     Dates: start: 20080221, end: 201305

REACTIONS (3)
  - Abdominal pain [Unknown]
  - Vaginal haemorrhage [Unknown]
  - Maternal exposure during pregnancy [Recovered/Resolved]

NARRATIVE: CASE EVENT DATE: 201604
